FAERS Safety Report 5606365-7 (Version None)
Quarter: 2008Q1

REPORT INFORMATION
  Report Type: 
  Country: None (occurrence: None)
  Receive Date: 20080129
  Receipt Date: 20070725
  Transmission Date: 20080703
  Serious: No
  Sender: FDA-Public Use
  Company Number: A0667108A

PATIENT
  Age: 35 Year
  Sex: Female

DRUGS (4)
  1. WELLBUTRIN [Suspect]
     Indication: DEPRESSION
     Dosage: 50MG PER DAY
     Route: 048
     Dates: start: 20061101
  2. PROVIGIL [Suspect]
     Dosage: 200MG PER DAY
     Route: 048
     Dates: start: 20070420
  3. LEXAPRO [Suspect]
     Indication: DEPRESSION
     Dosage: 10MG PER DAY
     Route: 048
     Dates: start: 20061101
  4. TOPAMAX [Suspect]
     Dosage: 50MG PER DAY
     Route: 048
     Dates: start: 20060101

REACTIONS (2)
  - DRUG INTERACTION [None]
  - FATIGUE [None]
